FAERS Safety Report 7461220-5 (Version None)
Quarter: 2011Q2

REPORT INFORMATION
  Report Type: 
  Country: None (occurrence: None)
  Receive Date: 20110505
  Receipt Date: 20110426
  Transmission Date: 20111010
  Serious: Yes (Hospitalization)
  Sender: FDA-Public Use
  Company Number: US-ASTRAZENECA-2001UW05196

PATIENT
  Age: 72 Year
  Sex: Female
  Weight: 65.3 kg

DRUGS (14)
  1. EVISTA [Concomitant]
  2. NEXIUM [Suspect]
     Indication: DYSPEPSIA
     Route: 048
     Dates: start: 20010506
  3. VITAMIN B-12 [Concomitant]
  4. CELEBREX [Concomitant]
  5. GLUCOSAMINE [Concomitant]
  6. ALLEGRA [Concomitant]
  7. VITAMIN E [Concomitant]
  8. NEXIUM [Interacting]
     Indication: HIATUS HERNIA
     Route: 048
     Dates: start: 20010506
  9. CALCIUM [Concomitant]
  10. UNSPECIFIED MEDICINE [Interacting]
     Route: 065
  11. TRIAMTERENE AND HYDROCHLOROTHIAZIDE [Concomitant]
  12. PROVENTIL GENTLEHALER [Concomitant]
  13. PLENDIL [Concomitant]
  14. ASPIRIN [Concomitant]

REACTIONS (8)
  - HOSPITALISATION [None]
  - BLOOD PRESSURE DECREASED [None]
  - BLOOD ELECTROLYTES DECREASED [None]
  - ENDOSCOPY UPPER GASTROINTESTINAL TRACT [None]
  - DIARRHOEA [None]
  - DRUG INTERACTION [None]
  - ULCER [None]
  - ABDOMINAL PAIN [None]
